FAERS Safety Report 5971224-7 (Version None)
Quarter: 2008Q4

REPORT INFORMATION
  Report Type: 
  Country: None (occurrence: None)
  Receive Date: 20081128
  Receipt Date: 20081121
  Transmission Date: 20090506
  Serious: Yes (Death, Hospitalization)
  Sender: FDA-Public Use
  Company Number: DE-PFIZER INC-2008094496

PATIENT
  Sex: Female
  Weight: 92 kg

DRUGS (23)
  1. ZYVOXID [Suspect]
     Indication: PNEUMONIA STAPHYLOCOCCAL
     Route: 042
     Dates: start: 20070808, end: 20080816
  2. AVELOX [Suspect]
     Dosage: DAILY DOSE:400MG
     Route: 042
     Dates: start: 20070726, end: 20070726
  3. AVELOX [Suspect]
     Dosage: DAILY DOSE:400MG
     Route: 048
     Dates: start: 20070727, end: 20080805
  4. CEFUROXIME [Suspect]
     Indication: URINARY TRACT INFECTION
     Route: 042
     Dates: start: 20070806, end: 20070806
  5. CEFUROXIME [Suspect]
     Route: 042
     Dates: start: 20070807, end: 20070807
  6. CEFUROXIME [Suspect]
     Route: 042
     Dates: start: 20070807, end: 20070815
  7. TYGACIL [Suspect]
     Dates: start: 20070816, end: 20070101
  8. CEFTRIAXONE [Suspect]
     Dates: end: 20070916
  9. ASPIRIN [Concomitant]
     Route: 048
     Dates: end: 20070601
  10. INSULIN [Concomitant]
     Dates: start: 20000101, end: 20070601
  11. THEOPHYLLINE [Concomitant]
  12. DELIX [Concomitant]
  13. ATACAND [Concomitant]
  14. TOREM [Concomitant]
  15. PHYSIOTENS [Concomitant]
  16. NEBILET [Concomitant]
  17. PANTOPRAZOLE SODIUM [Concomitant]
  18. POTASSIUM CHLORIDE [Concomitant]
  19. MODURETIC 5-50 [Concomitant]
  20. BUDESONIDE [Concomitant]
     Route: 055
  21. SULTANOL [Concomitant]
  22. ATROVENT [Concomitant]
  23. NORVASC [Concomitant]

REACTIONS (20)
  - BLOOD BILIRUBIN INCREASED [None]
  - CARDIOGENIC SHOCK [None]
  - CHOLANGITIS [None]
  - CHOLECYSTITIS ACUTE [None]
  - CHOLELITHIASIS [None]
  - COLLAPSE OF LUNG [None]
  - CONSTIPATION [None]
  - HEPATIC ENCEPHALOPATHY [None]
  - HEPATIC FAILURE [None]
  - HEPATITIS ACUTE [None]
  - HEPATOTOXICITY [None]
  - JAUNDICE [None]
  - KLEBSIELLA INFECTION [None]
  - LOWER RESPIRATORY TRACT INFECTION [None]
  - ORAL CANDIDIASIS [None]
  - PNEUMONIA STAPHYLOCOCCAL [None]
  - PROTEUS INFECTION [None]
  - TINEA CRURIS [None]
  - TRANSAMINASES INCREASED [None]
  - VARICES OESOPHAGEAL [None]
